FAERS Safety Report 17622072 (Version 1)
Quarter: 2020Q2

REPORT INFORMATION
  Report Type: Spontaneous
  Country: US (occurrence: US)
  Receive Date: 20200401
  Receipt Date: 20200401
  Transmission Date: 20200713
  Serious: Yes (Hospitalization)
  Sender: FDA-Public Use
  Company Number: None

PATIENT
  Age: 70 Year
  Sex: Male

DRUGS (27)
  1. REPATHA [Suspect]
     Active Substance: EVOLOCUMAB
     Indication: PRODUCT USED FOR UNKNOWN INDICATION
     Dosage: ?          OTHER DOSE:1 PEN;?
     Route: 058
     Dates: start: 20160317
  2. BENZONATATE. [Concomitant]
     Active Substance: BENZONATATE
  3. CORICIDN HBP COLD/FLU [Concomitant]
  4. LISINOPRIL. [Concomitant]
     Active Substance: LISINOPRIL
  5. TRAMADOL HCL [Concomitant]
     Active Substance: TRAMADOL HYDROCHLORIDE
  6. EZETIMBE [Concomitant]
     Active Substance: EZETIMIBE
  7. KETOROLAC [Concomitant]
     Active Substance: KETOROLAC TROMETHAMINE
  8. METOCLOPRAM [Concomitant]
     Active Substance: METOCLOPRAMIDE
  9. PROTONIX [Concomitant]
     Active Substance: PANTOPRAZOLE SODIUM
  10. PREDNISONE. [Concomitant]
     Active Substance: PREDNISONE
  11. WAL-ZYR (CETIRIZINE HYDROCHLORIDE) [Concomitant]
     Active Substance: CETIRIZINE HYDROCHLORIDE
  12. ALLOPURINOL. [Concomitant]
     Active Substance: ALLOPURINOL
  13. CLOPIDOGREL [Concomitant]
     Active Substance: CLOPIDOGREL BISULFATE
  14. HYDROCHLOROT [Concomitant]
     Active Substance: HYDROCHLOROTHIAZIDE
  15. ROSUVASTATIN. [Concomitant]
     Active Substance: ROSUVASTATIN
  16. AMOXICILLIN. [Concomitant]
     Active Substance: AMOXICILLIN
  17. ONDANSETRON [Concomitant]
     Active Substance: ONDANSETRON
  18. PROMETHAZINE [Concomitant]
     Active Substance: PROMETHAZINE HYDROCHLORIDE
  19. TORSEMIDE. [Concomitant]
     Active Substance: TORSEMIDE
  20. BROVANA NEB [Concomitant]
  21. CRESTOR [Concomitant]
     Active Substance: ROSUVASTATIN CALCIUM
  22. DIAZEPAM. [Concomitant]
     Active Substance: DIAZEPAM
  23. PANTOPRAZOLE [Concomitant]
     Active Substance: PANTOPRAZOLE
  24. ZETIA [Concomitant]
     Active Substance: EZETIMIBE
  25. AMOX/K CLAV [Concomitant]
     Active Substance: AMOXICILLIN\CLAVULANATE POTASSIUM
  26. JARDIANCE [Concomitant]
     Active Substance: EMPAGLIFLOZIN
  27. OMEGA-3 ACIDS [Concomitant]
     Active Substance: OMEGA-3 FATTY ACIDS

REACTIONS (3)
  - Gastritis [None]
  - Product storage error [None]
  - Therapy interrupted [None]

NARRATIVE: CASE EVENT DATE: 20200401
